FAERS Safety Report 25335615 (Version 6)
Quarter: 2025Q3

REPORT INFORMATION
  Report Type: Report from Study
  Country: KR (occurrence: KR)
  Receive Date: 20250520
  Receipt Date: 20250708
  Transmission Date: 20251021
  Serious: Yes (Hospitalization)
  Sender: KARYOPHARM THERAPEUTICS
  Company Number: KR-ANTENGENE-20250503152

PATIENT
  Age: 55 Year
  Sex: Male
  Weight: 52.8 kg

DRUGS (10)
  1. SELINEXOR [Suspect]
     Active Substance: SELINEXOR
     Indication: Plasma cell myeloma
     Route: 048
     Dates: start: 20250410, end: 20250614
  2. SELINEXOR [Suspect]
     Active Substance: SELINEXOR
     Route: 048
     Dates: start: 20250623
  3. DEXAMETHASONE [Concomitant]
     Active Substance: DEXAMETHASONE
     Indication: Plasma cell myeloma
     Route: 048
     Dates: start: 20250410
  4. SULFAMETHOXAZOLE\TRIMETHOPRIM [Concomitant]
     Active Substance: SULFAMETHOXAZOLE\TRIMETHOPRIM
     Indication: Prophylaxis
     Route: 048
     Dates: start: 20250410
  5. ALMAGEL-F [Concomitant]
     Indication: Prophylaxis
     Route: 048
     Dates: start: 20250410
  6. ONSERAN [Concomitant]
     Indication: Prophylaxis
     Route: 048
     Dates: start: 20250410
  7. MACPERAN [METOCLOPRAMIDE] [Concomitant]
     Indication: Prophylaxis
     Route: 048
     Dates: start: 20250410
  8. ZOYLEX [ACICLOVIR] [Concomitant]
     Indication: Prophylaxis
     Route: 048
     Dates: start: 20250410
  9. LYRICA [Concomitant]
     Active Substance: PREGABALIN
     Indication: Neuropathy peripheral
     Route: 048
     Dates: start: 2023
  10. NALOXONE HYDROCHLORIDE\OXYCODONE HYDROCHLORIDE [Concomitant]
     Active Substance: NALOXONE HYDROCHLORIDE\OXYCODONE HYDROCHLORIDE
     Indication: Plasma cell myeloma
     Route: 048
     Dates: start: 20230403

REACTIONS (13)
  - Febrile neutropenia [Recovered/Resolved]
  - COVID-19 pneumonia [Recovered/Resolved]
  - Hypophosphataemia [Recovered/Resolved]
  - Diabetes mellitus [Recovering/Resolving]
  - Diabetic ketoacidosis [Recovered/Resolved]
  - Anaemia [Not Recovered/Not Resolved]
  - Thrombocytopenia [Not Recovered/Not Resolved]
  - Neutrophil count decreased [Recovering/Resolving]
  - Diarrhoea [Recovering/Resolving]
  - Hypercalcaemia [Recovered/Resolved]
  - Haematochezia [Recovered/Resolved]
  - Hypokalaemia [Recovered/Resolved]
  - Hypoalbuminaemia [Recovered/Resolved]

NARRATIVE: CASE EVENT DATE: 20250424
